FAERS Safety Report 8780182 (Version 1)
Quarter: 2012Q4

REPORT INFORMATION
  Report Type: Spontaneous
  Country: US (occurrence: None)
  Receive Date: 20120831
  Receipt Date: 20120831
  Transmission Date: 20130627
  Serious: Yes (Other)
  Sender: FDA-Public Use
  Company Number: None

PATIENT
  Age: 44 Year
  Sex: Female
  Weight: 73.03 kg

DRUGS (2)
  1. CIPROFLOXACIN HCL [Suspect]
     Dates: start: 20120221, end: 20120222
  2. CIPROFLOXACIN HCL [Suspect]
     Dates: start: 20120223, end: 20120225

REACTIONS (13)
  - Paraesthesia [None]
  - Hypoaesthesia [None]
  - Nausea [None]
  - Chest pain [None]
  - Dysgeusia [None]
  - Ear discomfort [None]
  - Palpitations [None]
  - Myalgia [None]
  - Arthralgia [None]
  - Bone pain [None]
  - Abdominal pain [None]
  - Influenza like illness [None]
  - Influenza like illness [None]
